FAERS Safety Report 7495417-5 (Version None)
Quarter: 2011Q2

REPORT INFORMATION
  Report Type: 
  Country: None (occurrence: None)
  Receive Date: 20110513
  Receipt Date: 20110511
  Transmission Date: 20111010
  Serious: Yes (Life-Threatening, Hospitalization, Other)
  Sender: FDA-Public Use
  Company Number: 2011SP003967

PATIENT
  Age: 69 Year
  Sex: Male
  Weight: 73.5 kg

DRUGS (20)
  1. RABEPRAZOLE SODIUM [Concomitant]
  2. NEUROTROPIN [Concomitant]
  3. CANDESARTAN CILEXETIL [Concomitant]
  4. SELARA (EPLERENONE) [Concomitant]
  5. LASIX [Concomitant]
  6. METFORMIN HCL [Concomitant]
  7. LIPITOR [Concomitant]
  8. REBETOL [Suspect]
     Indication: HEPATITIS C
     Dosage: 800 MG; QD; PO
     Route: 048
     Dates: start: 20110111, end: 20110115
  9. STRONGER NEO MINOPHAGEN C [Concomitant]
  10. ASPIRIN [Concomitant]
  11. METHYCOBAL [Concomitant]
  12. LEVEMIR [Concomitant]
  13. PLAVIX [Concomitant]
  14. OPALMON (LIMAPROST ALFADEX) [Concomitant]
  15. NOVORAPID [Concomitant]
  16. URSO 250 [Concomitant]
  17. ADALAT CC [Concomitant]
  18. PLAVIX [Concomitant]
  19. INTERFERON [Suspect]
     Indication: HEPATITIS C
     Dosage: 6 MIU; QD; IV
     Route: 042
     Dates: start: 20110111, end: 20110115
  20. BASEN [Concomitant]

REACTIONS (2)
  - PSOAS ABSCESS [None]
  - MENINGITIS BACTERIAL [None]
